FAERS Safety Report 25483096 (Version 2)
Quarter: 2025Q3

REPORT INFORMATION
  Report Type: Spontaneous
  Country: US (occurrence: US)
  Receive Date: 20250626
  Receipt Date: 20250724
  Transmission Date: 20251020
  Serious: No
  Sender: JOHNSON AND JOHNSON
  Company Number: US-JNJFOC-20250630079

PATIENT
  Age: 44 Year
  Sex: Female

DRUGS (4)
  1. STELARA [Suspect]
     Active Substance: USTEKINUMAB
     Indication: Crohn^s disease
     Route: 058
     Dates: start: 20250301
  2. STELARA [Suspect]
     Active Substance: USTEKINUMAB
  3. KIRKLAND SIGNATURE ALLERCLEAR [Concomitant]
     Active Substance: LORATADINE
     Indication: Multiple allergies
     Dates: start: 20200101
  4. ASPIRINA C NF [Concomitant]
     Indication: Atrial fibrillation

REACTIONS (2)
  - Influenza [Unknown]
  - Conjunctivitis [Unknown]
